FAERS Safety Report 10655289 (Version 1)
Quarter: 2014Q4

REPORT INFORMATION
  Report Type: Spontaneous
  Country: US (occurrence: None)
  Receive Date: 20141212
  Receipt Date: 20141212
  Transmission Date: 20150529
  Serious: Yes (Hospitalization)
  Sender: FDA-Public Use
  Company Number: GEL-2014-002

PATIENT
  Sex: Male
  Weight: 80 kg

DRUGS (1)
  1. GELUSIL [Suspect]
     Active Substance: ALUMINUM HYDROXIDE\DIMETHICONE\MAGNESIUM HYDROXIDE\SILICON DIOXIDE
     Indication: PRODUCT USED FOR UNKNOWN INDICATION
     Dosage: 50 (UNITS NA); UNK FREQ; O

REACTIONS (3)
  - Headache [None]
  - Nausea [None]
  - Asthenia [None]
